FAERS Safety Report 16608234 (Version 3)
Quarter: 2019Q4

REPORT INFORMATION
  Report Type: Spontaneous
  Country: JP (occurrence: JP)
  Receive Date: 20190722
  Receipt Date: 20191206
  Transmission Date: 20200122
  Serious: Yes (Hospitalization, Other)
  Sender: FDA-Public Use
  Company Number: JP-009507513-1907JPN001827J

PATIENT
  Age: 83 Year
  Sex: Female
  Weight: 56 kg

DRUGS (6)
  1. FLUMARIN [Concomitant]
     Dosage: 1 GRAM, TWICE A DAY
     Route: 051
     Dates: start: 20190708, end: 20190719
  2. CANCIDAS [Suspect]
     Active Substance: CASPOFUNGIN ACETATE
     Indication: SYSTEMIC CANDIDA
     Dosage: 70 MILLIGRAM, DAILY
     Route: 041
     Dates: start: 20190712, end: 20190713
  3. OMEPRAZOLE. [Concomitant]
     Active Substance: OMEPRAZOLE
     Dosage: 20 MILLIGRAM, TWICE A DAY
     Route: 041
     Dates: start: 20190527, end: 20190716
  4. HOKUNALIN [Concomitant]
     Active Substance: TULOBUTEROL
     Dosage: 2 MILLIGRAM, DAILY
     Dates: start: 20190613, end: 20190708
  5. CANCIDAS [Suspect]
     Active Substance: CASPOFUNGIN ACETATE
     Dosage: 50 MILLIGRAM, DAILY
     Route: 041
     Dates: start: 20190713, end: 20190714
  6. VANCOMYCIN HYDROCHLORIDE. [Concomitant]
     Active Substance: VANCOMYCIN HYDROCHLORIDE
     Dosage: 1 GRAM, TWICE A DAY
     Route: 051
     Dates: start: 20190708, end: 20190719

REACTIONS (2)
  - Gastrointestinal haemorrhage [Recovered/Resolved]
  - Pneumonia aspiration [Unknown]

NARRATIVE: CASE EVENT DATE: 20190713
